FAERS Safety Report 15233405 (Version 2)
Quarter: 2018Q4

REPORT INFORMATION
  Report Type: Spontaneous
  Country: DE (occurrence: DE)
  Receive Date: 20180802
  Receipt Date: 20181105
  Transmission Date: 20190204
  Serious: Yes (Hospitalization)
  Sender: FDA-Public Use
  Company Number: DE-JNJFOC-20180729404

PATIENT
  Age: 74 Year
  Sex: Female
  Weight: 86 kg

DRUGS (10)
  1. PROCORALAN [Concomitant]
     Active Substance: IVABRADINE
  2. DAIVOBET [Concomitant]
     Active Substance: BETAMETHASONE DIPROPIONATE\CALCIPOTRIENE
  3. HERZ ASS [Concomitant]
  4. DAIVONEX [Concomitant]
     Active Substance: CALCIPOTRIENE
  5. INDAPAMID [Concomitant]
     Active Substance: INDAPAMIDE
  6. TREMFYA [Suspect]
     Active Substance: GUSELKUMAB
     Indication: PSORIASIS
     Dosage: 100 MG IN WEEK 0, THEN IN WEEK 4,??THEN EVERY 8 WEEKS,
     Route: 058
     Dates: start: 20180320, end: 20180418
  7. PANTOPRAZOLE [Concomitant]
     Active Substance: PANTOPRAZOLE
  8. METFORMIN [Concomitant]
     Active Substance: METFORMIN HYDROCHLORIDE
  9. CANDESARTAN. [Concomitant]
     Active Substance: CANDESARTAN
  10. THYROXINE [Concomitant]
     Active Substance: LEVOTHYROXINE

REACTIONS (1)
  - Segmented hyalinising vasculitis [Recovered/Resolved]

NARRATIVE: CASE EVENT DATE: 20180329
